FAERS Safety Report 24095688 (Version 3)
Quarter: 2024Q3

REPORT INFORMATION
  Report Type: Spontaneous
  Country: US (occurrence: US)
  Receive Date: 20240716
  Receipt Date: 20240902
  Transmission Date: 20241017
  Serious: No
  Sender: Haleon PLC
  Company Number: US-HALEON-2187197

PATIENT
  Age: 75 Year
  Sex: Male

DRUGS (1)
  1. ADVIL [Suspect]
     Active Substance: IBUPROFEN\IBUPROFEN SODIUM
     Indication: Myalgia
     Dosage: 2 CAPSULES

REACTIONS (3)
  - Tongue discomfort [Not Recovered/Not Resolved]
  - Product complaint [Unknown]
  - Wrong technique in product usage process [Unknown]
